FAERS Safety Report 25363785 (Version 5)
Quarter: 2025Q2

REPORT INFORMATION
  Report Type: Spontaneous
  Country: CN (occurrence: CN)
  Receive Date: 20250527
  Receipt Date: 20250623
  Transmission Date: 20250717
  Serious: Yes (Other)
  Sender: PFIZER
  Company Number: CN-PFIZER INC-PV202500062138

PATIENT
  Age: 57 Year
  Sex: Male

DRUGS (6)
  1. BENEFIX [Suspect]
     Active Substance: COAGULATION FACTOR IX RECOMBINANT HUMAN\ISOPROPYL ALCOHOL
     Indication: Factor IX deficiency
     Dates: start: 20220913
  2. BENEFIX [Suspect]
     Active Substance: COAGULATION FACTOR IX RECOMBINANT HUMAN\ISOPROPYL ALCOHOL
     Dosage: 3000 IU, 1X/DAY
     Route: 042
     Dates: start: 20231228
  3. BENEFIX [Suspect]
     Active Substance: COAGULATION FACTOR IX RECOMBINANT HUMAN\ISOPROPYL ALCOHOL
     Dosage: 2500 IU, 1X/DAY
     Route: 042
     Dates: start: 20240711
  4. BENEFIX [Suspect]
     Active Substance: COAGULATION FACTOR IX RECOMBINANT HUMAN\ISOPROPYL ALCOHOL
     Dosage: 3000 IU, 1X/DAY
     Route: 042
     Dates: start: 20240924
  5. BENEFIX [Suspect]
     Active Substance: COAGULATION FACTOR IX RECOMBINANT HUMAN\ISOPROPYL ALCOHOL
     Dosage: 3000 IU, 1X/DAY
     Route: 042
     Dates: start: 20241212
  6. BENEFIX [Suspect]
     Active Substance: COAGULATION FACTOR IX RECOMBINANT HUMAN\ISOPROPYL ALCOHOL
     Route: 040
     Dates: start: 20250522

REACTIONS (6)
  - Haemarthrosis [Recovering/Resolving]
  - Hip arthroplasty [Recovering/Resolving]
  - Arthralgia [Recovered/Resolved]
  - Ecchymosis [Recovered/Resolved]
  - Joint swelling [Recovered/Resolved]
  - Joint effusion [Recovered/Resolved]

NARRATIVE: CASE EVENT DATE: 20230801
